FAERS Safety Report 5192632-0 (Version None)
Quarter: 2006Q4

REPORT INFORMATION
  Report Type: 
  Country: None (occurrence: None)
  Receive Date: 20061228
  Receipt Date: 20061218
  Transmission Date: 20070319
  Serious: Yes (Hospitalization)
  Sender: FDA-Public Use
  Company Number: JP-JNJFOC-20061104674

PATIENT
  Sex: Female

DRUGS (10)
  1. REMICADE [Suspect]
     Dosage: 6 INFUSIONS
  2. REMICADE [Suspect]
     Dosage: 6 INFUSIONS
  3. REMICADE [Suspect]
     Dosage: 6 INFUSIONS
  4. REMICADE [Suspect]
     Indication: RHEUMATOID ARTHRITIS
     Dosage: 6 INFUSIONS
  5. RHEUMATREX [Suspect]
     Indication: RHEUMATOID ARTHRITIS
     Dosage: 6 INFUSIONS
     Route: 048
  6. VOLTAREN [Suspect]
     Indication: RHEUMATOID ARTHRITIS
     Route: 048
  7. CYTOTEC [Suspect]
     Indication: PROPHYLAXIS AGAINST GASTROINTESTINAL ULCER
     Dosage: DOSE = 600RG DAILY
     Route: 048
  8. PREDONINE [Suspect]
     Indication: RHEUMATOID ARTHRITIS
     Route: 048
  9. FERROMIA [Suspect]
     Indication: ANAEMIA
     Route: 048
  10. FOLIAMIN [Suspect]
     Indication: PROPHYLAXIS
     Route: 048

REACTIONS (1)
  - TUBERCULOUS PLEURISY [None]
